FAERS Safety Report 24169811 (Version 2)
Quarter: 2024Q3

REPORT INFORMATION
  Report Type: Spontaneous
  Country: US (occurrence: US)
  Receive Date: 20240803
  Receipt Date: 20240919
  Transmission Date: 20241016
  Serious: Yes (Hospitalization, Other)
  Sender: AUROBINDO
  Company Number: US-AUROBINDO-AUR-APL-2024-037839

PATIENT
  Age: 56 Year
  Sex: Female

DRUGS (14)
  1. VANCOMYCIN [Suspect]
     Active Substance: VANCOMYCIN
     Indication: Pneumonia pseudomonal
     Dosage: UNK
     Route: 065
  2. VANCOMYCIN [Suspect]
     Active Substance: VANCOMYCIN
     Indication: Evidence based treatment
  3. VANCOMYCIN [Suspect]
     Active Substance: VANCOMYCIN
     Indication: Pseudomonas infection
  4. PIPERACILLIN AND TAZOBACTAM [Suspect]
     Active Substance: PIPERACILLIN SODIUM\TAZOBACTAM SODIUM
     Indication: Pneumonia pseudomonal
     Dosage: UNK
     Route: 065
  5. PIPERACILLIN AND TAZOBACTAM [Suspect]
     Active Substance: PIPERACILLIN SODIUM\TAZOBACTAM SODIUM
     Indication: Evidence based treatment
  6. PIPERACILLIN AND TAZOBACTAM [Suspect]
     Active Substance: PIPERACILLIN SODIUM\TAZOBACTAM SODIUM
     Indication: Pseudomonas infection
  7. AZITHROMYCIN [Suspect]
     Active Substance: AZITHROMYCIN
     Indication: Pneumonia pseudomonal
     Dosage: UNK
     Route: 065
  8. AZITHROMYCIN [Suspect]
     Active Substance: AZITHROMYCIN
     Indication: Evidence based treatment
  9. AZITHROMYCIN [Suspect]
     Active Substance: AZITHROMYCIN
     Indication: Pseudomonas infection
  10. MEROPENEM [Suspect]
     Active Substance: MEROPENEM
     Indication: Pneumonia pseudomonal
     Dosage: UNK
     Route: 065
  11. MEROPENEM [Suspect]
     Active Substance: MEROPENEM
     Indication: Pseudomonas infection
  12. TOBRAMYCIN [Suspect]
     Active Substance: TOBRAMYCIN\TOBRAMYCIN SULFATE
     Indication: Pseudomonas infection
     Dosage: UNK
  13. CEFTOLOZANE SULFATE\TAZOBACTAM SODIUM [Suspect]
     Active Substance: CEFTOLOZANE SULFATE\TAZOBACTAM SODIUM
     Indication: Pseudomonas infection
     Dosage: UNK
     Route: 065
  14. NOREPINEPHRINE [Concomitant]
     Active Substance: NOREPINEPHRINE\NOREPINEPHRINE BITARTRATE
     Indication: Septic shock
     Dosage: UNK
     Route: 065

REACTIONS (2)
  - Pathogen resistance [Unknown]
  - Staphylococcal infection [Recovering/Resolving]
